FAERS Safety Report 4437090-6 (Version None)
Quarter: 2004Q3

REPORT INFORMATION
  Report Type: 
  Country: None (occurrence: None)
  Receive Date: 20040830
  Receipt Date: 20040820
  Transmission Date: 20050211
  Serious: Yes (Death)
  Sender: FDA-Public Use
  Company Number: US-JNJFOC-20040704058

PATIENT
  Sex: Male
  Weight: 88 kg

DRUGS (2)
  1. RISPERIDONE [Suspect]
     Route: 049
  2. ARICEPT [Concomitant]

REACTIONS (1)
  - DEATH [None]
